FAERS Safety Report 5677614-4 (Version None)
Quarter: 2008Q1

REPORT INFORMATION
  Report Type: 
  Country: None (occurrence: None)
  Receive Date: 20080324
  Receipt Date: 20080322
  Transmission Date: 20080703
  Serious: No
  Sender: FDA-Public Use
  Company Number: US-BAXTER-2008BH002644

PATIENT
  Age: 23 Year
  Sex: Female
  Weight: 54 kg

DRUGS (8)
  1. HEPARIN SODIUM [Suspect]
     Indication: CYSTITIS INTERSTITIAL
     Route: 043
     Dates: start: 20080313
  2. MARCAINE                                /USA/ [Concomitant]
     Indication: CYSTITIS INTERSTITIAL
     Dosage: DOSE UNIT:UNKNOWN
     Route: 065
     Dates: start: 20071226
  3. SODIUM BICARBONATE [Concomitant]
     Indication: CYSTITIS INTERSTITIAL
     Dosage: DOSE UNIT:UNKNOWN
     Route: 065
     Dates: start: 20071226
  4. KENALOG [Concomitant]
     Indication: CYSTITIS INTERSTITIAL
     Dosage: DOSE UNIT:UNKNOWN
     Route: 065
     Dates: start: 20071226
  5. SEASONIQUE [Concomitant]
     Indication: CONTRACEPTION
     Dosage: DOSE UNIT:UNKNOWN
     Route: 065
  6. AMITRIPTYLINE HCL [Concomitant]
     Indication: DRUG USE FOR UNKNOWN INDICATION
     Dosage: DOSE UNIT:UNKNOWN
     Route: 065
  7. PRE-LIEF [Concomitant]
     Indication: PHYTOTHERAPY
     Dosage: DOSE UNIT:UNKNOWN
     Route: 065
  8. ABRAXA [Concomitant]
     Indication: DRUG USE FOR UNKNOWN INDICATION
     Dosage: DOSE UNIT:UNKNOWN
     Route: 065

REACTIONS (3)
  - INFECTION [None]
  - LYMPHADENOPATHY [None]
  - PAIN [None]
